FAERS Safety Report 5215424-2 (Version None)
Quarter: 2007Q1

REPORT INFORMATION
  Report Type: 
  Country: None (occurrence: None)
  Receive Date: 20070123
  Receipt Date: 20070112
  Transmission Date: 20070707
  Serious: Yes (Death)
  Sender: FDA-Public Use
  Company Number: JP-ABBOTT-07P-087-0355673-00

PATIENT
  Age: 78 Year
  Sex: Female

DRUGS (3)
  1. ERYTHROCIN [Suspect]
     Indication: DRUG USE FOR UNKNOWN INDICATION
  2. DOXAPRAM HYDROCHLORIDE HYDRATE [Suspect]
     Indication: DRUG USE FOR UNKNOWN INDICATION
  3. DORIPENEM HYDRATE [Suspect]
     Indication: DRUG USE FOR UNKNOWN INDICATION

REACTIONS (1)
  - HEPATITIS FULMINANT [None]
